FAERS Safety Report 18563182 (Version 2)
Quarter: 2020Q4

REPORT INFORMATION
  Report Type: Spontaneous
  Country: CL (occurrence: CL)
  Receive Date: 20201201
  Receipt Date: 20201207
  Transmission Date: 20210114
  Serious: Yes (Other)
  Sender: FDA-Public Use
  Company Number: CL-GLAXOSMITHKLINE-CL2020AMR203623

PATIENT
  Age: 33 Year
  Sex: Female

DRUGS (1)
  1. BENLYSTA [Suspect]
     Active Substance: BELIMUMAB
     Indication: SYSTEMIC LUPUS ERYTHEMATOSUS
     Dosage: UNK
     Dates: start: 202007, end: 20200826

REACTIONS (9)
  - Surgery [Unknown]
  - Thyroid cancer [Unknown]
  - Disease complication [Unknown]
  - Inappropriate schedule of product administration [Unknown]
  - Therapy interrupted [Unknown]
  - Thyroid mass [Unknown]
  - Headache [Unknown]
  - Coronavirus infection [Unknown]
  - Neck pain [Unknown]

NARRATIVE: CASE EVENT DATE: 20201009
